FAERS Safety Report 5165067-4 (Version None)
Quarter: 2006Q4

REPORT INFORMATION
  Report Type: 
  Country: None (occurrence: None)
  Receive Date: 20061124
  Receipt Date: 20061114
  Transmission Date: 20070319
  Serious: Yes (Other)
  Sender: FDA-Public Use
  Company Number: 2006047116

PATIENT
  Age: 46 Year
  Sex: Female

DRUGS (7)
  1. LYRICA [Suspect]
     Indication: FACIAL NEURALGIA
     Dosage: 150 MG (150 MG, 1 D, ORAL
     Route: 048
     Dates: start: 20060215, end: 20060215
  2. LYRICA [Suspect]
     Indication: NEURALGIA
     Dosage: 150 MG (150 MG, 1 D, ORAL
     Route: 048
     Dates: start: 20060215, end: 20060215
  3. BESITRAN [Concomitant]
  4. ALPRAZOLAM [Concomitant]
  5. NOPRAMIN (DESIPRAMINE HYDROCHLORIDE) [Concomitant]
  6. NOCTAMID (LORMETAZEPAM) [Concomitant]
  7. VALIUM [Concomitant]

REACTIONS (8)
  - CHEST PAIN [None]
  - CHOKING [None]
  - CONFUSIONAL STATE [None]
  - COORDINATION ABNORMAL [None]
  - DISINHIBITION [None]
  - DYSARTHRIA [None]
  - EUPHORIC MOOD [None]
  - MALAISE [None]
